FAERS Safety Report 6470346-4 (Version None)
Quarter: 2009Q4

REPORT INFORMATION
  Report Type: 
  Country: None (occurrence: None)
  Receive Date: 20091202
  Receipt Date: 20091202
  Transmission Date: 20100525
  Serious: Yes (Hospitalization)
  Sender: FDA-Public Use
  Company Number: None

PATIENT
  Sex: Female
  Weight: 54.8 kg

DRUGS (6)
  1. TEMOZOLOMIDE [Suspect]
     Indication: ACUTE MYELOID LEUKAEMIA
     Dosage: 100 MG/M2 QD PO 200 MG/M2 QD PO
     Route: 048
     Dates: start: 20091002, end: 20091015
  2. TEMOZOLOMIDE [Suspect]
     Indication: ACUTE MYELOID LEUKAEMIA
     Dosage: 100 MG/M2 QD PO 200 MG/M2 QD PO
     Route: 048
     Dates: start: 20091016, end: 20091022
  3. SYNTHROID [Concomitant]
  4. LIPITOR [Concomitant]
  5. AUGMENTIN [Concomitant]
  6. TYLENOL (CAPLET) [Concomitant]

REACTIONS (5)
  - BLOOD PRODUCT TRANSFUSION DEPENDENT [None]
  - FEBRILE NEUTROPENIA [None]
  - PANCYTOPENIA [None]
  - RESPIRATORY RATE INCREASED [None]
  - SINUSITIS [None]
